FAERS Safety Report 23222109 (Version 1)
Quarter: 2023Q4

REPORT INFORMATION
  Report Type: Spontaneous
  Country: FR (occurrence: FR)
  Receive Date: 20231123
  Receipt Date: 20231123
  Transmission Date: 20240109
  Serious: Yes (Other)
  Sender: FDA-Public Use
  Company Number: FR-AMGEN-FRASP2023205287

PATIENT

DRUGS (1)
  1. ADALIMUMAB [Suspect]
     Active Substance: ADALIMUMAB\ISOPROPYL ALCOHOL
     Indication: Rheumatoid arthritis
     Dosage: UNK
     Route: 065

REACTIONS (21)
  - Colon cancer [Unknown]
  - Prostate cancer [Unknown]
  - Pancreatic carcinoma [Unknown]
  - Bladder cancer [Unknown]
  - Cervix carcinoma [Unknown]
  - Endometrial cancer [Unknown]
  - Hepatic cancer [Unknown]
  - Renal cancer [Unknown]
  - Ear neoplasm malignant [Unknown]
  - Ovarian cancer [Unknown]
  - Throat cancer [Unknown]
  - Lung neoplasm malignant [Unknown]
  - Breast cancer [Unknown]
  - Diffuse large B-cell lymphoma [Unknown]
  - Hodgkin^s disease [Unknown]
  - Malignant melanoma [Unknown]
  - Marginal zone lymphoma [Unknown]
  - Follicular lymphoma [Unknown]
  - Plasma cell myeloma [Unknown]
  - Nasal neoplasm [Unknown]
  - Urinary tract neoplasm [Unknown]
